FAERS Safety Report 19812607 (Version 2)
Quarter: 2021Q3

REPORT INFORMATION
  Report Type: Spontaneous
  Country: ZA (occurrence: ZA)
  Receive Date: 20210910
  Receipt Date: 20210920
  Transmission Date: 20211014
  Serious: Yes (Other)
  Sender: FDA-Public Use
  Company Number: ZA-CELLTRION INC.-2021ZA011293

PATIENT

DRUGS (4)
  1. REMSIMA [Suspect]
     Active Substance: INFLIXIMAB
     Dosage: 350 MG AT 0, 2, 6 WEEKS
     Route: 042
     Dates: start: 20210602
  2. PENTASA [Concomitant]
     Active Substance: MESALAMINE
     Indication: CROHN^S DISEASE
     Dosage: 1 GRAM, BID
  3. REMSIMA [Suspect]
     Active Substance: INFLIXIMAB
     Indication: CROHN^S DISEASE
     Dosage: 350 MG AT 0, 2, 6 WEEKS
     Route: 042
     Dates: start: 20210519
  4. REMSIMA [Suspect]
     Active Substance: INFLIXIMAB
     Dosage: 350 MG AT 0, 2, 6 WEEKS
     Route: 042
     Dates: start: 20210630

REACTIONS (4)
  - Crohn^s disease [Unknown]
  - Intentional product use issue [Unknown]
  - Underdose [Unknown]
  - Weight increased [Unknown]
